FAERS Safety Report 7113004-5 (Version None)
Quarter: 2010Q4

REPORT INFORMATION
  Report Type: 
  Country: None (occurrence: None)
  Receive Date: 20101119
  Receipt Date: 20101018
  Transmission Date: 20110411
  Serious: No
  Sender: FDA-Public Use
  Company Number: US-ASTRAZENECA-2010SE49147

PATIENT
  Sex: Female

DRUGS (1)
  1. VIMOVO [Suspect]
     Indication: ARTHRITIS
     Dosage: 500/20 MG DAILY
     Route: 048
     Dates: start: 20101006

REACTIONS (2)
  - ARTHRITIS [None]
  - DRUG INEFFECTIVE [None]
